FAERS Safety Report 10049048 (Version 1)
Quarter: 2014Q1

REPORT INFORMATION
  Report Type: Spontaneous
  Country: DE (occurrence: DE)
  Receive Date: 20140331
  Receipt Date: 20140331
  Transmission Date: 20141002
  Serious: Yes (Other)
  Sender: FDA-Public Use
  Company Number: DE-AMGEN-DEUSP2014021662

PATIENT
  Age: 58 Year
  Sex: Female

DRUGS (1)
  1. XGEVA [Suspect]
     Indication: SMALL CELL LUNG CANCER
     Route: 065

REACTIONS (1)
  - Osteonecrosis of jaw [Unknown]
